FAERS Safety Report 6785219-7 (Version None)
Quarter: 2010Q2

REPORT INFORMATION
  Report Type: 
  Country: None (occurrence: None)
  Receive Date: 20100622
  Receipt Date: 20100622
  Transmission Date: 20101027
  Serious: Yes (Hospitalization)
  Sender: FDA-Public Use
  Company Number: None

PATIENT
  Sex: Female
  Weight: 19.7 kg

DRUGS (26)
  1. VINCRISTINE SULFATE [Suspect]
     Dosage: 5.5 MG
  2. METHOTREXATE [Suspect]
     Dosage: 324 MG
  3. TPN ELECTROLYTES IN PLASTIC CONTAINER [Concomitant]
  4. ACETAMINOPHEN [Concomitant]
  5. ALTEPLASE [Concomitant]
  6. AMPHOTERICIN B [Concomitant]
  7. ATOVAQUONE [Concomitant]
  8. ATROPINE [Concomitant]
  9. CEFEPIME [Concomitant]
  10. CEFTRIAXONE [Concomitant]
  11. CHLORHEXIDINE [Concomitant]
  12. DIPHENHYDRAMINE [Concomitant]
  13. FENTANYL [Concomitant]
  14. HYDROCORTISONE [Concomitant]
  15. INTRALIPIDS [Concomitant]
  16. KETAMINE [Concomitant]
  17. MEROPENEM [Concomitant]
  18. METOCLOPRAMIDE [Concomitant]
  19. METRONIDAZOLE [Concomitant]
  20. MIDAZOLAM HCL [Concomitant]
  21. MORPHINE [Concomitant]
  22. ONDANSTERONE [Concomitant]
  23. OXYCODONE HCL [Concomitant]
  24. PENTAMIDINE ISETHIONATE [Concomitant]
  25. VANCOMYCIN [Concomitant]
  26. VANCOMYCIN [Concomitant]

REACTIONS (9)
  - ABDOMINAL PAIN [None]
  - ANORECTAL DISORDER [None]
  - CLOSTRIDIUM TEST POSITIVE [None]
  - HYPOPHAGIA [None]
  - MUCOSAL INFLAMMATION [None]
  - PANCREATITIS [None]
  - STOMATITIS [None]
  - VAGINAL DISORDER [None]
  - VOMITING [None]
